FAERS Safety Report 26052850 (Version 1)
Quarter: 2025Q4

REPORT INFORMATION
  Report Type: Spontaneous
  Country: IL (occurrence: IL)
  Receive Date: 20251117
  Receipt Date: 20251117
  Transmission Date: 20260118
  Serious: Yes (Other)
  Sender: BOEHRINGER INGELHEIM
  Company Number: IL-BoehringerIngelheim-2025-BI-106499

PATIENT
  Age: 79 Year
  Sex: Female

DRUGS (2)
  1. OFEV [Suspect]
     Active Substance: NINTEDANIB
     Indication: Pulmonary fibrosis
  2. OFEV [Suspect]
     Active Substance: NINTEDANIB

REACTIONS (2)
  - Pulmonary fibrosis [Not Recovered/Not Resolved]
  - Gastrointestinal disorder [Recovered/Resolved with Sequelae]
